APPROVED DRUG PRODUCT: PRIMAXIN
Active Ingredient: CILASTATIN SODIUM; IMIPENEM
Strength: EQ 250MG BASE/VIAL;250MG/VIAL **Federal Register determination that product was not discontinued or withdrawn for safety or effectiveness reasons**
Dosage Form/Route: POWDER;INTRAVENOUS
Application: N050587 | Product #001
Applicant: MERCK AND CO INC
Approved: Nov 26, 1985 | RLD: Yes | RS: No | Type: DISCN